FAERS Safety Report 10516719 (Version 2)
Quarter: 2014Q4

REPORT INFORMATION
  Report Type: Report from Study
  Country: US (occurrence: US)
  Receive Date: 20141014
  Receipt Date: 20141014
  Transmission Date: 20150528
  Serious: Yes (Hospitalization, Other)
  Sender: FDA-Public Use
  Company Number: US-ALEXION PHARMACEUTICALS INC-A200800802

PATIENT

DRUGS (1)
  1. SOLIRIS [Suspect]
     Active Substance: ECULIZUMAB
     Indication: PAROXYSMAL NOCTURNAL HAEMOGLOBINURIA

REACTIONS (14)
  - Spinal pain [Unknown]
  - Fatigue [Unknown]
  - Thrombosis [Unknown]
  - Shoulder deformity [Unknown]
  - Limb discomfort [Unknown]
  - Haemoglobinuria [Unknown]
  - Nausea [Unknown]
  - Skin discolouration [Unknown]
  - Muscle spasms [Unknown]
  - Influenza like illness [Unknown]
  - Abdominal discomfort [Unknown]
  - Headache [Unknown]
  - Quality of life decreased [Unknown]
  - Nasopharyngitis [Unknown]
